FAERS Safety Report 7918009-X (Version None)
Quarter: 2011Q4

REPORT INFORMATION
  Report Type: 
  Country: None (occurrence: None)
  Receive Date: 20111116
  Receipt Date: 20111110
  Transmission Date: 20120403
  Serious: Yes (Death)
  Sender: FDA-Public Use
  Company Number: GB-MERCK-1111GBR00052

PATIENT
  Age: 61 Year
  Sex: Female
  Weight: 160 kg

DRUGS (5)
  1. JANUVIA [Suspect]
     Indication: DIABETES MELLITUS INADEQUATE CONTROL
     Route: 048
     Dates: start: 20110727
  2. GLICLAZIDE [Concomitant]
     Route: 065
  3. AMLODIPINE [Concomitant]
     Route: 065
  4. RAMIPRIL [Concomitant]
     Route: 065
  5. SIMVASTATIN [Concomitant]
     Route: 048

REACTIONS (1)
  - SUDDEN DEATH [None]
